FAERS Safety Report 18389112 (Version 3)
Quarter: 2020Q4

REPORT INFORMATION
  Report Type: Spontaneous
  Country: US (occurrence: US)
  Receive Date: 20201016
  Receipt Date: 20201120
  Transmission Date: 20210114
  Serious: Yes (Other)
  Sender: FDA-Public Use
  Company Number: US-AUROBINDO-AUR-APL-2020-052295

PATIENT
  Sex: Female

DRUGS (1)
  1. METOPROLOL TARTRATE FILM COATED TABLETS USP 25 MG [Suspect]
     Active Substance: METOPROLOL TARTRATE
     Indication: PRODUCT USED FOR UNKNOWN INDICATION
     Dosage: TAKE 01 TABLET BY MOUTH
     Route: 048

REACTIONS (4)
  - Fear of death [Recovered/Resolved]
  - Dyspnoea [Recovered/Resolved]
  - Blood pressure increased [Recovered/Resolved]
  - Heart rate increased [Recovering/Resolving]
